FAERS Safety Report 10201077 (Version 1)
Quarter: 2014Q2

REPORT INFORMATION
  Report Type: Spontaneous
  Country: US (occurrence: US)
  Receive Date: 20140528
  Receipt Date: 20140528
  Transmission Date: 20141212
  Serious: No
  Sender: FDA-Public Use
  Company Number: US-BAYER-2014-079217

PATIENT
  Sex: Male

DRUGS (1)
  1. EOVIST [Suspect]
     Indication: COMPUTERISED TOMOGRAM ABDOMEN
     Dosage: 10 ML, ONCE
     Route: 042
     Dates: start: 20140523, end: 20140523

REACTIONS (1)
  - Dyspnoea [Recovered/Resolved]
